FAERS Safety Report 5085790-X (Version None)
Quarter: 2006Q3

REPORT INFORMATION
  Report Type: 
  Country: None (occurrence: None)
  Receive Date: 20060817
  Receipt Date: 20060804
  Transmission Date: 20061208
  Serious: Yes (Other)
  Sender: FDA-Public Use
  Company Number: 2006095523

PATIENT
  Sex: Male

DRUGS (2)
  1. GEODON [Suspect]
     Indication: DRUG USE FOR UNKNOWN INDICATION
     Dosage: 60-80 MG QAM / 80 MG QPM (80 MG, 2 IN 1 D)
     Dates: start: 20010101
  2. CHEMOTHERAPY NOS (CHEMOTHERAPY NOS) [Suspect]
     Indication: TESTIS CANCER

REACTIONS (5)
  - BLOOD OESTROGEN INCREASED [None]
  - BODY TEMPERATURE DECREASED [None]
  - GYNAECOMASTIA [None]
  - MUSCULOSKELETAL STIFFNESS [None]
  - TESTIS CANCER [None]
